FAERS Safety Report 16859232 (Version 1)
Quarter: 2019Q3

REPORT INFORMATION
  Report Type: Spontaneous
  Country: US (occurrence: US)
  Receive Date: 20190926
  Receipt Date: 20190926
  Transmission Date: 20191005
  Serious: No
  Sender: FDA-Public Use
  Company Number: US-AMGEN-USASP2019157053

PATIENT
  Sex: Male

DRUGS (2)
  1. ENBREL [Suspect]
     Active Substance: ETANERCEPT
     Dosage: 50 MILLIGRAM, QWK
     Route: 065
     Dates: start: 2019
  2. ENBREL [Suspect]
     Active Substance: ETANERCEPT
     Indication: PSORIATIC ARTHROPATHY
     Dosage: UNK UNK, QMO
     Route: 065
     Dates: end: 2018

REACTIONS (5)
  - Inappropriate schedule of product administration [Unknown]
  - Pigmentation disorder [Unknown]
  - Hypersensitivity [Unknown]
  - Musculoskeletal pain [Unknown]
  - Neck pain [Unknown]

NARRATIVE: CASE EVENT DATE: 2018
